FAERS Safety Report 24988788 (Version 2)
Quarter: 2025Q1

REPORT INFORMATION
  Report Type: Spontaneous
  Country: BG (occurrence: BG)
  Receive Date: 20250220
  Receipt Date: 20250321
  Transmission Date: 20250408
  Serious: Yes (Hospitalization, Disabling, Other)
  Sender: ROCHE
  Company Number: BG-ROCHE-10000207945

PATIENT
  Age: 70 Year
  Sex: Female

DRUGS (2)
  1. TOCILIZUMAB [Suspect]
     Active Substance: TOCILIZUMAB
     Indication: Rheumatoid arthritis
     Dosage: DOSE AND UNIT: 20 MG/ML CONCENTRATE FOR SOLUTION FOR INFUSION.?FREQUENCY: 8 MG/KG BODY WEIGHT, GIVEN
     Route: 042
     Dates: start: 2010
  2. BETAMETHASONE DIPROPIONATE\BETAMETHASONE SODIUM PHOSPHATE [Concomitant]
     Active Substance: BETAMETHASONE DIPROPIONATE\BETAMETHASONE SODIUM PHOSPHATE
     Indication: Arthralgia
     Route: 042
     Dates: start: 2025, end: 2025

REACTIONS (7)
  - Nephrolithiasis [Recovered/Resolved]
  - Renal failure [Not Recovered/Not Resolved]
  - Haematuria [Recovered/Resolved]
  - Nosocomial infection [Recovered/Resolved]
  - Leukocytosis [Recovered/Resolved]
  - Arthralgia [Recovered/Resolved]
  - Renal failure [Not Recovered/Not Resolved]

NARRATIVE: CASE EVENT DATE: 20200101
